FAERS Safety Report 8346719-1 (Version None)
Quarter: 2012Q2

REPORT INFORMATION
  Report Type: 
  Country: None (occurrence: None)
  Receive Date: 20120509
  Receipt Date: 20120426
  Transmission Date: 20120825
  Serious: Yes (Other)
  Sender: FDA-Public Use
  Company Number: US-SANOFI-AVENTIS-2012SA029822

PATIENT
  Sex: Female

DRUGS (4)
  1. LANTUS [Suspect]
     Dosage: 64 UNITS IN MORNING AND 24 UNITS IN EVENING
     Route: 058
  2. SOLOSTAR [Suspect]
  3. LANTUS [Suspect]
     Dosage: DOSE:50 UNIT(S)
     Route: 058
  4. NOVOLOG [Concomitant]

REACTIONS (7)
  - PNEUMONIA [None]
  - FEELING ABNORMAL [None]
  - FATIGUE [None]
  - WEIGHT DECREASED [None]
  - BLOOD GLUCOSE INCREASED [None]
  - BLOOD GLUCOSE DECREASED [None]
  - MEDICATION ERROR [None]
